FAERS Safety Report 8253043-4 (Version None)
Quarter: 2012Q2

REPORT INFORMATION
  Report Type: 
  Country: None (occurrence: None)
  Receive Date: 20120402
  Receipt Date: 20120301
  Transmission Date: 20120825
  Serious: No
  Sender: FDA-Public Use
  Company Number: US-AMGEN-USASP2012013811

PATIENT
  Age: 82 Year
  Sex: Female

DRUGS (2)
  1. ENBREL [Suspect]
     Indication: RHEUMATOID ARTHRITIS
     Dosage: UNK
     Dates: start: 20000101, end: 20090601
  2. ORENCIA [Concomitant]
     Dosage: UNK

REACTIONS (5)
  - THERAPEUTIC RESPONSE DECREASED [None]
  - DEPRESSED MOOD [None]
  - MALAISE [None]
  - RHEUMATOID ARTHRITIS [None]
  - EMOTIONAL DISTRESS [None]
